FAERS Safety Report 9223075 (Version 5)
Quarter: 2021Q4

REPORT INFORMATION
  Report Type: Report from Study
  Country: JP (occurrence: JP)
  Receive Date: 20130410
  Receipt Date: 20211122
  Transmission Date: 20220304
  Serious: Yes (Hospitalization, Other)
  Sender: FDA-Public Use
  Company Number: PHHY2013JP033749

PATIENT
  Age: 69 Year
  Sex: Female

DRUGS (11)
  1. TASIGNA [Suspect]
     Active Substance: NILOTINIB
     Indication: Chronic myeloid leukaemia
     Dosage: 400 MG, BID
     Route: 048
     Dates: start: 20090323
  2. SENNOSIDES [Concomitant]
     Active Substance: SENNOSIDES
     Indication: Product used for unknown indication
     Dosage: 24 MG
     Route: 048
     Dates: start: 20110210
  3. LASIX [Concomitant]
     Active Substance: FUROSEMIDE
     Indication: Product used for unknown indication
     Dosage: 20 MG
     Route: 048
     Dates: start: 20080220, end: 20090430
  4. SODIUM FERROUS CITRATE [Concomitant]
     Active Substance: SODIUM FERROUS CITRATE
     Indication: Product used for unknown indication
     Dosage: 100 MG
     Route: 048
     Dates: start: 20090406
  5. SODIUM FERROUS CITRATE [Concomitant]
     Active Substance: SODIUM FERROUS CITRATE
     Dosage: 50 MG
     Route: 048
     Dates: start: 20091227
  6. MAGNESIUM OXIDE [Concomitant]
     Active Substance: MAGNESIUM OXIDE
     Indication: Prophylaxis
     Dosage: 1 G
     Route: 048
     Dates: start: 20091005
  7. LANSOPRAZOLE [Concomitant]
     Active Substance: LANSOPRAZOLE
     Indication: Product used for unknown indication
     Dosage: 30 MG
     Route: 048
     Dates: start: 20100715
  8. LANSOPRAZOLE [Concomitant]
     Active Substance: LANSOPRAZOLE
     Dosage: 15 MG
     Route: 048
  9. ASPIRIN [Concomitant]
     Active Substance: ASPIRIN
     Indication: Prophylaxis
     Dosage: 300 MG
     Route: 048
     Dates: start: 20110202
  10. ASPIRIN [Concomitant]
     Active Substance: ASPIRIN
     Dosage: 100 MG
     Route: 048
  11. BROTIZOLAM [Concomitant]
     Active Substance: BROTIZOLAM
     Indication: Insomnia
     Dosage: 0.125 MG, UNK
     Route: 048
     Dates: start: 20090529

REACTIONS (19)
  - Cerebral infarction [Recovered/Resolved with Sequelae]
  - Hyperkalaemia [Recovering/Resolving]
  - Hyperkalaemia [Recovered/Resolved]
  - Renal impairment [Recovered/Resolved]
  - Hepatic function abnormal [Recovered/Resolved]
  - Constipation [Recovering/Resolving]
  - Hypertension [Recovered/Resolved]
  - Iron deficiency anaemia [Recovered/Resolved]
  - Concomitant disease aggravated [Recovered/Resolved]
  - Papule [Recovering/Resolving]
  - Hyperglycaemia [Not Recovered/Not Resolved]
  - Headache [Recovered/Resolved]
  - Hyperlipidaemia [Recovered/Resolved]
  - Alanine aminotransferase increased [Recovered/Resolved]
  - Hyperphosphataemia [Recovered/Resolved]
  - Hyperlipasaemia [Recovered/Resolved]
  - Blood lactate dehydrogenase increased [Not Recovered/Not Resolved]
  - Iron deficiency anaemia [Recovered/Resolved]
  - Concomitant disease aggravated [Recovered/Resolved]

NARRATIVE: CASE EVENT DATE: 20090406
